FAERS Safety Report 4283729-8 (Version None)
Quarter: 2004Q1

REPORT INFORMATION
  Report Type: 
  Country: None (occurrence: None)
  Receive Date: 20040129
  Receipt Date: 20040129
  Transmission Date: 20041129
  Serious: Yes (Life-Threatening)
  Sender: FDA-Public Use
  Company Number: None

PATIENT
  Age: 12 Year
  Sex: Female
  Weight: 48.9885 kg

DRUGS (2)
  1. ADVAIR DISKUS 500/50 [Suspect]
     Indication: ASTHMA
     Dosage: 1 PUFF TWICE A DA RESPIRATORY
     Route: 055
     Dates: start: 20030307, end: 20031218
  2. SINGULAIR [Concomitant]

REACTIONS (7)
  - DIZZINESS [None]
  - DYSPHAGIA [None]
  - DYSPNOEA [None]
  - MYALGIA [None]
  - OROPHARYNGEAL SWELLING [None]
  - PARAESTHESIA [None]
  - SYNCOPE [None]
